FAERS Safety Report 16552799 (Version 4)
Quarter: 2019Q3

REPORT INFORMATION
  Report Type: Spontaneous
  Country: US (occurrence: US)
  Receive Date: 20190710
  Receipt Date: 20190723
  Transmission Date: 20191004
  Serious: No
  Sender: FDA-Public Use
  Company Number: US-PFIZER INC-2019292760

PATIENT
  Age: 61 Year
  Sex: Female
  Weight: 97.52 kg

DRUGS (2)
  1. AFINITOR [Concomitant]
     Active Substance: EVEROLIMUS
     Indication: BREAST CANCER METASTATIC
     Dosage: 10 MG, 1X/DAY
     Route: 048
     Dates: start: 20190219
  2. EXEMESTANE. [Suspect]
     Active Substance: EXEMESTANE
     Indication: BREAST CANCER METASTATIC
     Dosage: 25 MG, 1X/DAY
     Route: 048
     Dates: start: 20190208, end: 20190628

REACTIONS (17)
  - Urinary tract infection [Unknown]
  - Dysuria [Unknown]
  - Micturition urgency [Unknown]
  - Peripheral swelling [Not Recovered/Not Resolved]
  - Renal pain [Unknown]
  - Urine output increased [Unknown]
  - Hypoacusis [Unknown]
  - Nausea [Recovered/Resolved]
  - Headache [Recovered/Resolved]
  - Haematuria [Unknown]
  - Weight decreased [Unknown]
  - Dehydration [Recovered/Resolved]
  - Chills [Recovered/Resolved]
  - Pyrexia [Recovered/Resolved]
  - Incontinence [Unknown]
  - Pollakiuria [Unknown]
  - Body height decreased [Unknown]

NARRATIVE: CASE EVENT DATE: 201902
